FAERS Safety Report 24097619 (Version 1)
Quarter: 2024Q3

REPORT INFORMATION
  Report Type: Spontaneous
  Country: UY (occurrence: UY)
  Receive Date: 20240716
  Receipt Date: 20240716
  Transmission Date: 20241017
  Serious: Yes (Life-Threatening, Hospitalization, Other)
  Sender: FRESENIUS KABI
  Company Number: UY-FreseniusKabi-FK202410961

PATIENT
  Age: 25 Year
  Sex: Female

DRUGS (1)
  1. OXYTOCIN [Suspect]
     Active Substance: OXYTOCIN
     Indication: Obstetrical procedure
     Dosage: DOSAGE FORM: INJECTABLE SOLUTION 5 IU/1ML?FREQUENCY: 2 DOSES?NUMBER OF RECEIVED DOSES: 1 ?SITE OF AD
     Route: 042
     Dates: start: 20240701, end: 20240701

REACTIONS (2)
  - Uterine atony [Recovering/Resolving]
  - Maternal exposure during delivery [Unknown]

NARRATIVE: CASE EVENT DATE: 20240701
